FAERS Safety Report 24878148 (Version 2)
Quarter: 2025Q1

REPORT INFORMATION
  Report Type: Spontaneous
  Country: CN (occurrence: CN)
  Receive Date: 20250123
  Receipt Date: 20250218
  Transmission Date: 20250409
  Serious: Yes (Other)
  Sender: TAKEDA
  Company Number: CN-HUTCHMED LIMITED-HMP2025CN00077

PATIENT
  Age: 23 Year
  Sex: Female

DRUGS (6)
  1. FRUQUINTINIB [Suspect]
     Active Substance: FRUQUINTINIB
     Indication: Adenocarcinoma of colon
  2. FRUQUINTINIB [Suspect]
     Active Substance: FRUQUINTINIB
  3. GIMERACIL\OTERACIL\TEGAFUR [Concomitant]
     Active Substance: GIMERACIL\OTERACIL POTASSIUM\TEGAFUR
     Indication: Adenocarcinoma of colon
  4. GIMERACIL\OTERACIL\TEGAFUR [Concomitant]
     Active Substance: GIMERACIL\OTERACIL POTASSIUM\TEGAFUR
  5. SINTILIMAB [Concomitant]
     Active Substance: SINTILIMAB
     Indication: Adenocarcinoma of colon
     Dosage: 200 MILLIGRAM, Q3WEEKS
     Dates: start: 202108, end: 202204
  6. SINTILIMAB [Concomitant]
     Active Substance: SINTILIMAB
     Dosage: 200 MILLIGRAM, Q3WEEKS
     Dates: start: 20220726

REACTIONS (3)
  - Leukopenia [Unknown]
  - Alopecia [Unknown]
  - Hepatic function abnormal [Unknown]
